FAERS Safety Report 13058473 (Version 1)
Quarter: 2016Q4

REPORT INFORMATION
  Report Type: Spontaneous
  Country: IL (occurrence: IL)
  Receive Date: 20161223
  Receipt Date: 20161223
  Transmission Date: 20170207
  Serious: Yes (Death, Life-Threatening, Hospitalization)
  Sender: FDA-Public Use
  Company Number: IL-UNITED THERAPEUTICS-UNT-2016-019284

PATIENT
  Age: 55 Year
  Sex: Female
  Weight: 48 kg

DRUGS (1)
  1. REMODULIN [Suspect]
     Active Substance: TREPROSTINIL
     Indication: PULMONARY ARTERIAL HYPERTENSION
     Dosage: 0.094 ?G/KG, CONTINUING
     Route: 058
     Dates: start: 2000

REACTIONS (6)
  - Respiratory failure [Unknown]
  - Acute kidney injury [Unknown]
  - Infusion site cellulitis [Unknown]
  - Hypotension [Unknown]
  - Disease progression [Unknown]
  - Pneumonia [Fatal]

NARRATIVE: CASE EVENT DATE: 20161217
